FAERS Safety Report 18631130 (Version 2)
Quarter: 2020Q4

REPORT INFORMATION
  Report Type: Spontaneous
  Country: US (occurrence: US)
  Receive Date: 20201218
  Receipt Date: 20201221
  Transmission Date: 20210114
  Serious: No
  Sender: FDA-Public Use
  Company Number: US-JNJFOC-20201212061

PATIENT
  Age: 67 Year
  Sex: Male
  Weight: 90.7 kg

DRUGS (4)
  1. TYVASO [Concomitant]
     Active Substance: TREPROSTINIL
     Dates: start: 2020
  2. TYLENOL [Suspect]
     Active Substance: ACETAMINOPHEN
     Indication: HEADACHE
     Route: 065
  3. TYVASO [Concomitant]
     Active Substance: TREPROSTINIL
     Dosage: UNK
  4. TYVASO [Concomitant]
     Active Substance: TREPROSTINIL
     Indication: PULMONARY ARTERIAL HYPERTENSION
     Dosage: DELIVERED BY TYVASO INHALATION DEVICE (TD-300/A) (DEVICE ONLY),?THE CURRENT DOSE WAS REPORTED AS 18-
     Dates: start: 20201001

REACTIONS (1)
  - Drug ineffective [Unknown]
